APPROVED DRUG PRODUCT: CISPLATIN
Active Ingredient: CISPLATIN
Strength: 50MG/VIAL
Dosage Form/Route: INJECTABLE;INJECTION
Application: N018057 | Product #002
Applicant: HQ SPECIALTY PHARMA CORP
Approved: Approved Prior to Jan 1, 1982 | RLD: Yes | RS: Yes | Type: RX